FAERS Safety Report 6821216-0 (Version None)
Quarter: 2010Q3

REPORT INFORMATION
  Report Type: 
  Country: None (occurrence: None)
  Receive Date: 20100707
  Receipt Date: 20080521
  Transmission Date: 20110219
  Serious: No
  Sender: FDA-Public Use
  Company Number: US-PFIZER INC-2008029778

PATIENT
  Sex: Female
  Weight: 59.09 kg

DRUGS (12)
  1. ZOLOFT [Suspect]
     Indication: ANXIETY
     Dates: start: 19930101
  2. ZOLOFT [Suspect]
     Indication: DEPRESSION
  3. SERTRALINE [Suspect]
     Indication: ANXIETY
     Dates: start: 20070101
  4. SERTRALINE [Suspect]
     Indication: DEPRESSION
  5. SPIRIVA [Concomitant]
  6. ALBUTEROL [Concomitant]
  7. MULTI-VITAMINS [Concomitant]
  8. FISH OIL [Concomitant]
  9. RED YEAST RICE [Concomitant]
     Indication: BLOOD CHOLESTEROL ABNORMAL
  10. VITAMIN D [Concomitant]
  11. VITAMIN C [Concomitant]
  12. VITAMIN E [Concomitant]

REACTIONS (4)
  - ANXIETY [None]
  - DECREASED INTEREST [None]
  - DEPRESSION [None]
  - DRUG DISPENSING ERROR [None]
